FAERS Safety Report 25153301 (Version 1)
Quarter: 2025Q2

REPORT INFORMATION
  Report Type: Spontaneous
  Country: US (occurrence: US)
  Receive Date: 20250403
  Receipt Date: 20250403
  Transmission Date: 20250716
  Serious: Yes (Other)
  Sender: STRIDES
  Company Number: US-STRIDES ARCOLAB LIMITED-2024SP014119

PATIENT
  Age: 40 Year
  Sex: Female

DRUGS (7)
  1. TRIAMCINOLONE ACETONIDE [Suspect]
     Active Substance: TRIAMCINOLONE ACETONIDE
     Indication: Eczema
     Route: 065
  2. CRISABOROLE [Suspect]
     Active Substance: CRISABOROLE
     Indication: Eczema
     Route: 065
  3. CLOBETASOL [Suspect]
     Active Substance: CLOBETASOL
     Indication: Eczema
     Route: 065
  4. TACROLIMUS [Suspect]
     Active Substance: TACROLIMUS
     Indication: Eczema
     Route: 065
  5. Immunoglobulin [Concomitant]
     Indication: Chronic inflammatory demyelinating polyradiculoneuropathy
     Route: 042
  6. Immunoglobulin [Concomitant]
     Route: 042
  7. PREDNISONE [Concomitant]
     Active Substance: PREDNISONE
     Indication: Eczema
     Route: 065

REACTIONS (1)
  - Therapy non-responder [Unknown]
